FAERS Safety Report 26151570 (Version 3)
Quarter: 2025Q4

REPORT INFORMATION
  Report Type: Report from Study
  Country: IN (occurrence: IN)
  Receive Date: 20251212
  Receipt Date: 20251225
  Transmission Date: 20260117
  Serious: Yes (Hospitalization, Other)
  Sender: ASTELLAS
  Company Number: IN-ASTELLAS-2025-AER-069460

PATIENT
  Age: 52 Year
  Sex: Female

DRUGS (1)
  1. CRESEMBA [Suspect]
     Active Substance: ISAVUCONAZONIUM SULFATE
     Indication: Product used for unknown indication
     Dosage: CAPSULE, HARD,QD
     Route: 048

REACTIONS (5)
  - Pyrexia [Unknown]
  - Haemoglobin decreased [Unknown]
  - Pneumonia [Unknown]
  - Candida infection [Unknown]
  - Infection [Unknown]
